FAERS Safety Report 5818473-6 (Version None)
Quarter: 2008Q3

REPORT INFORMATION
  Report Type: 
  Country: None (occurrence: None)
  Receive Date: 20080722
  Receipt Date: 20080711
  Transmission Date: 20090109
  Serious: Yes (Congenital Anomaly)
  Sender: FDA-Public Use
  Company Number: US-MERCK-0807USA02991

PATIENT
  Sex: Male

DRUGS (4)
  1. SINGULAIR [Suspect]
     Route: 064
     Dates: start: 20040608, end: 20040609
  2. EFFEXOR [Concomitant]
     Route: 064
  3. [THERAPY UNSPECIFIED] [Concomitant]
     Route: 064
  4. VITAMINS (UNSPECIFIED) [Concomitant]
     Route: 064

REACTIONS (1)
  - DACRYOSTENOSIS CONGENITAL [None]
